FAERS Safety Report 14819188 (Version 1)
Quarter: 2018Q2

REPORT INFORMATION
  Report Type: Spontaneous
  Country: NL (occurrence: NL)
  Receive Date: 20180427
  Receipt Date: 20180427
  Transmission Date: 20180711
  Serious: Yes (Hospitalization)
  Sender: FDA-Public Use
  Company Number: NL-CONCORDIA PHARMACEUTICALS INC.-E2B_00011412

PATIENT
  Age: 67 Year
  Sex: Male
  Weight: 86 kg

DRUGS (9)
  1. FOLIUMZUUR [Concomitant]
     Active Substance: FOLIC ACID
  2. PANTAPROZOL [Concomitant]
  3. CALCIUM [Concomitant]
     Active Substance: CALCIUM
  4. MIRTAZAPINE. [Concomitant]
     Active Substance: MIRTAZAPINE
  5. ALVESCO [Concomitant]
     Active Substance: CICLESONIDE
  6. PREDNISOLONE. [Suspect]
     Active Substance: PREDNISOLONE
     Indication: ASTHMA
     Dosage: 7,5 MG PER DAG
     Dates: start: 2016
  7. OXIS INHALER [Concomitant]
  8. MONTELUKAST [Concomitant]
     Active Substance: MONTELUKAST SODIUM
  9. CETIRIZINE [Concomitant]
     Active Substance: CETIRIZINE HYDROCHLORIDE

REACTIONS (2)
  - Erythema [Not Recovered/Not Resolved]
  - Feeling hot [Not Recovered/Not Resolved]

NARRATIVE: CASE EVENT DATE: 201706
